FAERS Safety Report 16841361 (Version 8)
Quarter: 2021Q3

REPORT INFORMATION
  Report Type: Spontaneous
  Country: GB (occurrence: GB)
  Receive Date: 20190923
  Receipt Date: 20210820
  Transmission Date: 20211014
  Serious: Yes (Other)
  Sender: FDA-Public Use
  Company Number: PHHY2019GB200523

PATIENT
  Age: 23 Year
  Sex: Male

DRUGS (7)
  1. DICLOFENAC SODIUM. [Suspect]
     Active Substance: DICLOFENAC SODIUM
     Indication: PRODUCT USED FOR UNKNOWN INDICATION
     Dosage: 0.4 %, QID (4 TIMES A DAY)
     Route: 061
  2. DICLOFENAC SODIUM. [Suspect]
     Active Substance: DICLOFENAC SODIUM
     Dosage: 0.1 %, QID (06 HRS)
     Route: 061
  3. CHLORAMPHENICOL [Suspect]
     Active Substance: CHLORAMPHENICOL
     Indication: PRODUCT USED FOR UNKNOWN INDICATION
     Dosage: 1 %, QID (06 HRS)
     Route: 061
  4. CYCLOPENTOLATE HYDROCHLORIDE. [Suspect]
     Active Substance: CYCLOPENTOLATE HYDROCHLORIDE
     Dosage: UNK, UNK, 3 TIMES PER DAY
     Route: 065
  5. SODIUM HYALURONATE [Suspect]
     Active Substance: HYALURONATE SODIUM
     Indication: PRODUCT USED FOR UNKNOWN INDICATION
     Dosage: 0.2 %, Q2H EVERY TWO HOURS
     Route: 061
  6. CYCLOPENTOLATE HYDROCHLORIDE. [Suspect]
     Active Substance: CYCLOPENTOLATE HYDROCHLORIDE
     Indication: PRODUCT USED FOR UNKNOWN INDICATION
     Dosage: 1 %, TID (08 HOURS)
     Route: 061
  7. CHLORAMPHENICOL [Suspect]
     Active Substance: CHLORAMPHENICOL
     Dosage: 0.5 % FOUR TIMES PER DAY
     Route: 061

REACTIONS (2)
  - Visual impairment [Recovering/Resolving]
  - Keratopathy [Recovered/Resolved with Sequelae]
